FAERS Safety Report 5074966-3 (Version None)
Quarter: 2006Q3

REPORT INFORMATION
  Report Type: 
  Country: None (occurrence: None)
  Receive Date: 20060809
  Receipt Date: 20060727
  Transmission Date: 20061208
  Serious: Yes (Other)
  Sender: FDA-Public Use
  Company Number: JP-BRISTOL-MYERS SQUIBB COMPANY-13465836

PATIENT
  Age: 70 Year
  Sex: Female

DRUGS (11)
  1. ABILIFY [Suspect]
     Indication: SCHIZOPHRENIA
     Route: 048
     Dates: start: 20060714, end: 20060719
  2. FLUVOXAMINE MALEATE [Concomitant]
     Indication: ANXIETY
     Route: 048
     Dates: start: 20060206, end: 20060719
  3. FLUVOXAMINE MALEATE [Concomitant]
     Indication: DEPRESSION
     Route: 048
     Dates: start: 20060206, end: 20060719
  4. LEVOMEPROMAZINE MALEATE [Concomitant]
     Indication: INSOMNIA
     Route: 048
     Dates: start: 20060119, end: 20060719
  5. ETIZOLAM [Concomitant]
     Indication: SLEEP DISORDER
     Route: 048
     Dates: start: 20060119, end: 20060719
  6. FLUNITRAZEPAM [Concomitant]
     Indication: INSOMNIA
     Route: 048
     Dates: start: 20060119
  7. SENNOSIDE [Concomitant]
     Indication: CONSTIPATION
     Route: 048
     Dates: start: 20060119
  8. SENNA LEAF [Concomitant]
     Indication: CONSTIPATION
     Route: 048
     Dates: start: 20060206, end: 20060719
  9. SENNA PODS [Concomitant]
     Indication: CONSTIPATION
     Route: 048
     Dates: start: 20060227, end: 20060719
  10. QUAZEPAM [Concomitant]
     Route: 048
     Dates: start: 20060227, end: 20060719
  11. GLIBENCLAMIDE [Concomitant]
     Indication: DIABETES MELLITUS
     Route: 048
     Dates: start: 20060322

REACTIONS (2)
  - LIVER DISORDER [None]
  - NEUROLEPTIC MALIGNANT SYNDROME [None]
